FAERS Safety Report 15250123 (Version 2)
Quarter: 2018Q3

REPORT INFORMATION
  Report Type: Spontaneous
  Country: NL (occurrence: NL)
  Receive Date: 20180807
  Receipt Date: 20180816
  Transmission Date: 20181010
  Serious: Yes (Other)
  Sender: FDA-Public Use
  Company Number: NL-PFIZER INC-2018312982

PATIENT
  Age: 8 Year
  Sex: Male

DRUGS (2)
  1. DOXYCYCLINE HYCLATE. [Suspect]
     Active Substance: DOXYCYCLINE HYCLATE
     Indication: ERYTHEMA MIGRANS
  2. DOXYCYCLINE HYCLATE. [Suspect]
     Active Substance: DOXYCYCLINE HYCLATE
     Indication: LYME DISEASE
     Dosage: UNK

REACTIONS (4)
  - Photosensitivity reaction [Recovering/Resolving]
  - Nail discolouration [Recovering/Resolving]
  - Onychomadesis [Recovering/Resolving]
  - Blister [Recovering/Resolving]
